FAERS Safety Report 12927716 (Version 1)
Quarter: 2016Q4

REPORT INFORMATION
  Report Type: Spontaneous
  Country: JP (occurrence: JP)
  Receive Date: 20161109
  Receipt Date: 20161109
  Transmission Date: 20170207
  Serious: Yes (Death)
  Sender: FDA-Public Use
  Company Number: JP-ROCHE-1851314

PATIENT
  Age: 4 Year
  Sex: Male
  Weight: 8 kg

DRUGS (1)
  1. ACTEMRA [Suspect]
     Active Substance: TOCILIZUMAB
     Indication: INTERSTITIAL LUNG DISEASE
     Dosage: MOST RECENT DOSE: 06/OCT/2016
     Route: 041
     Dates: start: 20160823

REACTIONS (2)
  - Complications of transplanted lung [Fatal]
  - Off label use [Fatal]

NARRATIVE: CASE EVENT DATE: 20161025
